FAERS Safety Report 9737112 (Version 2)
Quarter: 2014Q1

REPORT INFORMATION
  Report Type: Spontaneous
  Country: ES (occurrence: ES)
  Receive Date: 20131206
  Receipt Date: 20140307
  Transmission Date: 20141002
  Serious: Yes (Death, Hospitalization)
  Sender: FDA-Public Use
  Company Number: PHHY2013ES139262

PATIENT
  Age: 28 Year
  Sex: Female

DRUGS (1)
  1. RIMSTAR [Suspect]
     Indication: TUBERCULOSIS
     Dosage: 1 DF, QD
     Route: 048
     Dates: start: 201307, end: 20131014

REACTIONS (2)
  - Hepatic failure [Fatal]
  - Drug reaction with eosinophilia and systemic symptoms [Fatal]
